FAERS Safety Report 8128401 (Version 7)
Quarter: 2023Q2

REPORT INFORMATION
  Report Type: Spontaneous
  Country: HR (occurrence: HR)
  Receive Date: 20110909
  Receipt Date: 20230517
  Transmission Date: 20230722
  Serious: Yes (Hospitalization, Other)
  Sender: FDA-Public Use
  Company Number: HR-SANOFI-AVENTIS-2011SA056460AA

PATIENT
  Age: 31 Year
  Sex: Female

DRUGS (36)
  1. BACLOFEN [Suspect]
     Active Substance: BACLOFEN
     Indication: Pain
     Dosage: 10 MG, TID
     Route: 065
     Dates: start: 200709
  2. BACLOFEN [Suspect]
     Active Substance: BACLOFEN
     Dosage: 25 MG, TID
     Route: 065
     Dates: start: 200805
  3. BACLOFEN [Suspect]
     Active Substance: BACLOFEN
     Dosage: 25 MG, TID
     Route: 065
     Dates: start: 200904
  4. BACLOFEN [Suspect]
     Active Substance: BACLOFEN
     Dosage: 25 MG, TID
     Route: 065
     Dates: start: 201003
  5. LEVOTHYROXINE SODIUM [Suspect]
     Active Substance: LEVOTHYROXINE SODIUM
     Indication: Autoimmune thyroiditis
     Dosage: 50 UG
  6. LEVOTHYROXINE SODIUM [Suspect]
     Active Substance: LEVOTHYROXINE SODIUM
     Indication: Hypothyroidism
     Dosage: 75 UG
     Dates: start: 200709
  7. LEVOTHYROXINE SODIUM [Suspect]
     Active Substance: LEVOTHYROXINE SODIUM
     Dosage: 50 UG
     Dates: start: 200904
  8. LEVOTHYROXINE SODIUM [Suspect]
     Active Substance: LEVOTHYROXINE SODIUM
     Dosage: 75 UG
     Dates: start: 201003
  9. IBUPROFEN [Suspect]
     Active Substance: IBUPROFEN
     Indication: Pain
     Dosage: 400 MG
     Dates: start: 200703
  10. CARBAMAZEPINE [Suspect]
     Active Substance: CARBAMAZEPINE
     Indication: Pain
     Dosage: 200 MG, TID
     Dates: start: 200709
  11. PIROXICAM [Suspect]
     Active Substance: PIROXICAM
     Indication: Pain
     Dosage: 20 MG
     Route: 065
     Dates: start: 200709
  12. ACETAMINOPHEN\TRAMADOL HYDROCHLORIDE [Suspect]
     Active Substance: ACETAMINOPHEN\TRAMADOL HYDROCHLORIDE
     Indication: Pain
     Dosage: TID (37.5 MG/325MG 2 TABLETS)
     Dates: start: 200709
  13. ACETAMINOPHEN\TRAMADOL HYDROCHLORIDE [Suspect]
     Active Substance: ACETAMINOPHEN\TRAMADOL HYDROCHLORIDE
     Dosage: TID (2(375/325 MG)
     Route: 065
     Dates: start: 200805
  14. ACETAMINOPHEN\TRAMADOL HYDROCHLORIDE [Suspect]
     Active Substance: ACETAMINOPHEN\TRAMADOL HYDROCHLORIDE
     Dosage: TID (37.5 MG/325MG 2 TABLETS)
     Dates: start: 200904
  15. ACETAMINOPHEN\TRAMADOL HYDROCHLORIDE [Suspect]
     Active Substance: ACETAMINOPHEN\TRAMADOL HYDROCHLORIDE
     Dosage: PP
     Dates: start: 201003
  16. DIAZEPAM [Suspect]
     Active Substance: DIAZEPAM
     Indication: Pain
     Dosage: 5 MG, QD
     Route: 065
     Dates: start: 200709
  17. DIAZEPAM [Suspect]
     Active Substance: DIAZEPAM
     Dosage: 2 MG
     Route: 065
     Dates: start: 201003
  18. DIAZEPAM [Suspect]
     Active Substance: DIAZEPAM
     Dosage: 2 MG
     Route: 065
     Dates: start: 201003
  19. DIAZEPAM [Suspect]
     Active Substance: DIAZEPAM
     Dosage: 5 MG
     Route: 065
     Dates: start: 201003
  20. RANITIDINE [Suspect]
     Active Substance: RANITIDINE
     Indication: Product used for unknown indication
     Dosage: 150 MG, BID
     Dates: start: 200709
  21. SERTRALINE [Suspect]
     Active Substance: SERTRALINE HYDROCHLORIDE
     Indication: Pain
     Dosage: 1 DF, QD
     Dates: start: 200805
  22. SERTRALINE [Suspect]
     Active Substance: SERTRALINE HYDROCHLORIDE
     Dosage: 50 MG, QD
     Route: 065
     Dates: start: 200904
  23. ALPRAZOLAM [Suspect]
     Active Substance: ALPRAZOLAM
     Indication: Pain
     Dosage: 0.5 MG, TID
     Dates: start: 200805
  24. OXYCODONE [Suspect]
     Active Substance: OXYCODONE
     Indication: Pain
     Dosage: 10 MG, TID
     Dates: start: 200904
  25. OXYCODONE [Suspect]
     Active Substance: OXYCODONE
     Dosage: 10 MG, QD
     Route: 065
     Dates: start: 200904
  26. OXYCODONE [Suspect]
     Active Substance: OXYCODONE
     Dosage: 10 MG
     Route: 065
     Dates: start: 201003
  27. GABAPENTIN [Suspect]
     Active Substance: GABAPENTIN
     Indication: Pain
     Dosage: 300 MG, TID
     Dates: start: 200904
  28. BUPRENORPHINE [Suspect]
     Active Substance: BUPRENORPHINE
     Indication: Pain
     Dosage: 70 UG, Q3D
     Dates: start: 200904
  29. PANTOPRAZOLE [Suspect]
     Active Substance: PANTOPRAZOLE
     Indication: Product used for unknown indication
     Dosage: 20 MG
     Dates: start: 200904
  30. FENTANYL [Suspect]
     Active Substance: FENTANYL
     Indication: Pain
     Dosage: 100 UG, Q3D
     Route: 065
     Dates: start: 201003
  31. ESOMEPRAZOLE [Suspect]
     Active Substance: ESOMEPRAZOLE
     Dosage: 20 MG, BID
     Dates: start: 201003
  32. FEXOFENADINE HYDROCHLORIDE [Suspect]
     Active Substance: FEXOFENADINE HYDROCHLORIDE
     Indication: Pain
     Dosage: 180 MG
     Route: 065
     Dates: start: 201003
  33. GINKGO [Suspect]
     Active Substance: GINKGO
     Indication: Pain
     Dosage: 120 MG
     Route: 065
     Dates: start: 201003
  34. CYANOCOBALAMIN\PYRIDOXINE\RIBOFLAVIN\THIAMINE [Suspect]
     Active Substance: CYANOCOBALAMIN\PYRIDOXINE\RIBOFLAVIN\THIAMINE
     Indication: Pain
     Dosage: 1 DF, BID
     Dates: start: 200805
  35. CYANOCOBALAMIN\PYRIDOXINE\RIBOFLAVIN\THIAMINE [Suspect]
     Active Substance: CYANOCOBALAMIN\PYRIDOXINE\RIBOFLAVIN\THIAMINE
     Dosage: 1 DF, BID
     Dates: start: 200904
  36. PREGABALIN [Suspect]
     Active Substance: PREGABALIN
     Indication: Pain
     Dosage: 300 MG, BID
     Route: 065
     Dates: start: 201003

REACTIONS (30)
  - Quadriparesis [Unknown]
  - Condition aggravated [Unknown]
  - Sensory disturbance [Unknown]
  - Loss of consciousness [Unknown]
  - Syncope [Unknown]
  - Diplopia [Unknown]
  - Schizophrenia [Unknown]
  - Depression [Unknown]
  - Neurosis [Unknown]
  - Disturbance in attention [Unknown]
  - Feeling abnormal [Unknown]
  - Conversion disorder [Unknown]
  - Confusional state [Unknown]
  - Asthenia [Unknown]
  - Cognitive disorder [Unknown]
  - Musculoskeletal stiffness [Unknown]
  - Psychomotor skills impaired [Unknown]
  - Oedema [Unknown]
  - Fatigue [Unknown]
  - Persistent depressive disorder [Unknown]
  - Anxiety [Unknown]
  - Dizziness [Unknown]
  - Headache [Unknown]
  - Constipation [Unknown]
  - Pruritus [Unknown]
  - Vomiting [Unknown]
  - Nausea [Unknown]
  - Sedation [Unknown]
  - Ataxia [Unknown]
  - Pain [Unknown]
